FAERS Safety Report 6171113-1 (Version None)
Quarter: 2009Q2

REPORT INFORMATION
  Report Type: 
  Country: None (occurrence: None)
  Receive Date: 20090429
  Receipt Date: 20090420
  Transmission Date: 20091009
  Serious: Yes (Disabling)
  Sender: FDA-Public Use
  Company Number: PHHY2009TR14720

PATIENT
  Age: 69 Year
  Sex: Female
  Weight: 77 kg

DRUGS (4)
  1. DIOVAN [Suspect]
     Indication: HYPERTENSION
     Dosage: 160 MG, UNK
     Dates: start: 19990101
  2. PRENT [Concomitant]
  3. TRENTAL [Concomitant]
  4. LISINOPRIL [Concomitant]

REACTIONS (1)
  - BREAST CANCER [None]
